FAERS Safety Report 17133339 (Version 1)
Quarter: 2019Q4

REPORT INFORMATION
  Report Type: Spontaneous
  Country: US (occurrence: US)
  Receive Date: 20191116
  Receipt Date: 20191116
  Transmission Date: 20200122
  Serious: Yes (Hospitalization)
  Sender: FDA-Public Use
  Company Number: None

PATIENT
  Age: 18 Year
  Sex: Male
  Weight: 65.2 kg

DRUGS (3)
  1. CISPLATIN. [Suspect]
     Active Substance: CISPLATIN
     Dates: end: 20191103
  2. BLEOMYCIN [Suspect]
     Active Substance: BLEOMYCIN SULFATE
     Dates: end: 20191112
  3. ETOPOSIDE (VP-16) [Suspect]
     Active Substance: ETOPOSIDE
     Dates: end: 20191102

REACTIONS (8)
  - Chills [None]
  - Nausea [None]
  - Platelet count decreased [None]
  - Septic shock [None]
  - Back pain [None]
  - White blood cell count decreased [None]
  - Neutrophil count decreased [None]
  - Haemoglobin decreased [None]

NARRATIVE: CASE EVENT DATE: 20191112
